FAERS Safety Report 8094267-9 (Version None)
Quarter: 2012Q1

REPORT INFORMATION
  Report Type: 
  Country: None (occurrence: None)
  Receive Date: 20120125
  Receipt Date: 20120116
  Transmission Date: 20120608
  Serious: Yes (Other)
  Sender: FDA-Public Use
  Company Number: 2012MA000764

PATIENT
  Sex: Female

DRUGS (1)
  1. BUPROPION HYDROCHLORIDE (WELLBUTRIN XL) [Suspect]
     Dosage: 75 MG;QD;TRPL

REACTIONS (11)
  - GRAND MAL CONVULSION [None]
  - CAESAREAN SECTION [None]
  - FEEDING DISORDER NEONATAL [None]
  - BLOOD CORTISOL DECREASED [None]
  - BREECH PRESENTATION [None]
  - FREE FATTY ACIDS DECREASED [None]
  - LETHARGY [None]
  - MATERNAL DRUGS AFFECTING FOETUS [None]
  - HYPERINSULINISM [None]
  - HYPOGLYCAEMIA NEONATAL [None]
  - BLOOD KETONE BODY DECREASED [None]
